FAERS Safety Report 17164020 (Version 1)
Quarter: 2019Q4

REPORT INFORMATION
  Report Type: Report from Study
  Country: None (occurrence: BR)
  Receive Date: 20191217
  Receipt Date: 20191217
  Transmission Date: 20200122
  Serious: Yes (Other)
  Sender: FDA-Public Use
  Company Number: BR-ABBVIE-19K-020-3192473-00

PATIENT
  Age: 53 Year
  Sex: Female
  Weight: 96 kg

DRUGS (3)
  1. HUMIRA [Suspect]
     Active Substance: ADALIMUMAB
     Indication: RHEUMATOID ARTHRITIS
     Route: 058
     Dates: start: 20190206
  2. OSTEO BI-FLEX [Concomitant]
     Active Substance: CHONDROITIN SULFATE A\GLUCOSAMINE
     Indication: MUSCLE DISORDER
     Route: 048
     Dates: start: 201906
  3. METHOTREXATE. [Suspect]
     Active Substance: METHOTREXATE
     Indication: INFLAMMATION
     Route: 048

REACTIONS (12)
  - Gingival bleeding [Not Recovered/Not Resolved]
  - Immunodeficiency [Unknown]
  - Vitamin D deficiency [Unknown]
  - Tooth loss [Recovering/Resolving]
  - Dental caries [Not Recovered/Not Resolved]
  - Toothache [Recovering/Resolving]
  - Tooth fracture [Not Recovered/Not Resolved]
  - Angular cheilitis [Unknown]
  - Tooth disorder [Unknown]
  - Aphthous ulcer [Unknown]
  - Tooth socket haemorrhage [Recovering/Resolving]
  - Menopause [Unknown]

NARRATIVE: CASE EVENT DATE: 2019
